FAERS Safety Report 7770357-2 (Version None)
Quarter: 2011Q3

REPORT INFORMATION
  Report Type: 
  Country: None (occurrence: None)
  Receive Date: 20110922
  Receipt Date: 20100827
  Transmission Date: 20111222
  Serious: No
  Sender: FDA-Public Use
  Company Number: US-ASTRAZENECA-2007UW27726

PATIENT
  Age: 617 Month
  Sex: Male
  Weight: 90.7 kg

DRUGS (4)
  1. SEROQUEL [Suspect]
     Route: 048
     Dates: start: 20010801, end: 20030801
  2. SEROQUEL [Suspect]
     Indication: DEPRESSION
     Dosage: 50MG TO 350MG
     Route: 048
     Dates: start: 20010801, end: 20030801
  3. ABILIFY [Concomitant]
  4. SOLIAN [Concomitant]

REACTIONS (2)
  - DIABETIC COMPLICATION [None]
  - DIABETES MELLITUS [None]
